FAERS Safety Report 24370980 (Version 2)
Quarter: 2025Q1

REPORT INFORMATION
  Report Type: Spontaneous
  Country: CA (occurrence: CA)
  Receive Date: 20240927
  Receipt Date: 20250122
  Transmission Date: 20250409
  Serious: Yes (Other)
  Sender: TAKEDA
  Company Number: CA-TAKEDA-2024TUS093659

PATIENT
  Age: 53 Year
  Sex: Female

DRUGS (5)
  1. MESALAMINE [Suspect]
     Active Substance: MESALAMINE
     Indication: Product used for unknown indication
     Dosage: 2.4 GRAM, QD
  2. MESALAMINE [Suspect]
     Active Substance: MESALAMINE
     Indication: Product used for unknown indication
     Dosage: 1.2 GRAM, QD
  3. ADALIMUMAB [Suspect]
     Active Substance: ADALIMUMAB
     Indication: Ankylosing spondylitis
  4. ADALIMUMAB [Suspect]
     Active Substance: ADALIMUMAB
     Indication: Ankylosing spondylitis
     Dosage: 40 MILLIGRAM, 1/WEEK
  5. ADALIMUMAB [Suspect]
     Active Substance: ADALIMUMAB

REACTIONS (6)
  - Ankylosing spondylitis [Recovering/Resolving]
  - Drug level decreased [Recovering/Resolving]
  - Inflammatory bowel disease [Recovering/Resolving]
  - Stress [Recovering/Resolving]
  - Transaminases increased [Recovering/Resolving]
  - Therapeutic response shortened [Recovering/Resolving]
